FAERS Safety Report 4289773-9 (Version None)
Quarter: 2004Q1

REPORT INFORMATION
  Report Type: 
  Country: None (occurrence: None)
  Receive Date: 20040210
  Receipt Date: 20040209
  Transmission Date: 20041129
  Serious: Yes (Hospitalization)
  Sender: FDA-Public Use
  Company Number: FR-GLAXOSMITHKLINE-A0497182A

PATIENT
  Age: 58 Year
  Sex: Male

DRUGS (8)
  1. NAVELBINE [Suspect]
     Route: 042
     Dates: start: 19960606
  2. CISPLATIN [Concomitant]
     Route: 065
     Dates: start: 19960606
  3. CORDARONE [Concomitant]
     Dosage: 16TAB THREE TIMES PER DAY
     Route: 048
     Dates: start: 19960604, end: 19960610
  4. STILNOX [Concomitant]
     Dates: start: 19960604
  5. XANAX [Concomitant]
     Dates: start: 19960604
  6. DUPHALAC [Concomitant]
     Dates: start: 19960604
  7. FUNGIZONE [Concomitant]
     Route: 048
     Dates: start: 19960604
  8. XYLOCAINE [Concomitant]
     Indication: BRONCHOSCOPY
     Dates: start: 19960603, end: 19960603

REACTIONS (1)
  - AGRANULOCYTOSIS [None]
